FAERS Safety Report 8024214-7 (Version None)
Quarter: 2012Q1

REPORT INFORMATION
  Report Type: 
  Country: None (occurrence: None)
  Receive Date: 20120105
  Receipt Date: 20111228
  Transmission Date: 20120608
  Serious: Yes (Hospitalization, Other)
  Sender: FDA-Public Use
  Company Number: PHFR2011IE05781

PATIENT
  Sex: Male

DRUGS (6)
  1. SYMBICORT [Concomitant]
     Indication: CHRONIC OBSTRUCTIVE PULMONARY DISEASE
     Dosage: 1 DF, BID
  2. CLOZARIL [Suspect]
     Indication: SCHIZOPHRENIA
     Dosage: 375 MG, DIVIDED DOSES
     Route: 048
     Dates: start: 20061121
  3. OMEPRAZOLE [Concomitant]
     Indication: PEPTIC ULCER
     Dosage: 20 MG, DAILY
     Route: 048
  4. SPIRIVA [Concomitant]
     Indication: CHRONIC OBSTRUCTIVE PULMONARY DISEASE
     Dosage: 18 UG, DAILY
  5. ALBUTEROL SULFATE AUTOHALER [Concomitant]
     Indication: CHRONIC OBSTRUCTIVE PULMONARY DISEASE
     Dosage: 2 DF, BID
  6. CLONAZEPAM [Concomitant]
     Indication: ANXIETY
     Dosage: 0.5 MG, TID
     Route: 048

REACTIONS (8)
  - CHEST PAIN [None]
  - DYSPNOEA [None]
  - PERICARDIAL EFFUSION [None]
  - PLEURAL EFFUSION [None]
  - PRODUCTIVE COUGH [None]
  - CHRONIC OBSTRUCTIVE PULMONARY DISEASE [None]
  - NEOPLASM [None]
  - CARDIAC FAILURE CHRONIC [None]
